FAERS Safety Report 12269942 (Version 1)
Quarter: 2016Q2

REPORT INFORMATION
  Report Type: Report from Study
  Country: US (occurrence: US)
  Receive Date: 20160415
  Receipt Date: 20160415
  Transmission Date: 20160815
  Serious: No
  Sender: FDA-Public Use
  Company Number: US-AMGEN-USASL2016046102

PATIENT
  Age: 53 Year
  Sex: Male

DRUGS (1)
  1. ENBREL [Suspect]
     Active Substance: ETANERCEPT
     Indication: PRODUCT USED FOR UNKNOWN INDICATION
     Dosage: UNK UNK, UNK
     Route: 065

REACTIONS (6)
  - Weight decreased [Unknown]
  - Pain [Unknown]
  - Swelling [Unknown]
  - Condition aggravated [Unknown]
  - Muscle spasms [Unknown]
  - Weight increased [Unknown]

NARRATIVE: CASE EVENT DATE: 2016
